FAERS Safety Report 9914285 (Version 1)
Quarter: 2014Q1

REPORT INFORMATION
  Report Type: Spontaneous
  Country: FR (occurrence: None)
  Receive Date: 20140218
  Receipt Date: 20140218
  Transmission Date: 20141002
  Serious: Yes (Life-Threatening, Hospitalization)
  Sender: FDA-Public Use
  Company Number: DSM-2013-01082

PATIENT
  Age: 82 Year
  Sex: Female
  Weight: 57 kg

DRUGS (6)
  1. ALTEIS DUO [Suspect]
     Indication: HYPERTENSION
     Route: 048
  2. KARDEGIC [Concomitant]
  3. AVLOCARDYL [Concomitant]
  4. DOLIPRANE [Concomitant]
  5. OROCAL D3 (COLECALCIFEROL, CALCIUM CARBONATE) (COLECALCIFEROL, CALCIUM CARBONATE) [Concomitant]
  6. ACLASTA (ZOLEDRONIC ACID) (ZOLEDRONIC ACID) [Concomitant]

REACTIONS (5)
  - Colitis microscopic [None]
  - Gastrointestinal motility disorder [None]
  - Renal failure [None]
  - Hyponatraemia [None]
  - Hypokalaemia [None]
